FAERS Safety Report 6687637-4 (Version None)
Quarter: 2010Q2

REPORT INFORMATION
  Report Type: 
  Country: None (occurrence: None)
  Receive Date: 20100419
  Receipt Date: 20100409
  Transmission Date: 20101027
  Serious: Yes (Other)
  Sender: FDA-Public Use
  Company Number: IT-ABBOTT-10P-083-0637507-00

PATIENT

DRUGS (1)
  1. DEPAKINE CHRONO [Suspect]
     Indication: EPILEPSY
     Dosage: EXTENDED RELEASE 1500MG DAILY
     Route: 048

REACTIONS (3)
  - AURA [None]
  - DRUG INEFFECTIVE [None]
  - MOTOR DYSFUNCTION [None]
